FAERS Safety Report 7998310-4 (Version None)
Quarter: 2011Q4

REPORT INFORMATION
  Report Type: 
  Country: None (occurrence: None)
  Receive Date: 20111221
  Receipt Date: 20110630
  Transmission Date: 20120403
  Serious: No
  Sender: FDA-Public Use
  Company Number: US-GLAXOSMITHKLINE-A0933995A

PATIENT
  Age: 75 Year
  Sex: Male

DRUGS (8)
  1. DOXIN [Concomitant]
  2. PROTONIX [Concomitant]
  3. WARFARIN SODIUM [Concomitant]
  4. ATENOLOL [Concomitant]
  5. DILTIAZEM HCL [Concomitant]
  6. ENALAPRIL MALEATE [Concomitant]
  7. LIPITOR [Concomitant]
  8. LOVAZA [Suspect]
     Indication: BLOOD TRIGLYCERIDES INCREASED
     Dosage: 2G TWICE PER DAY
     Route: 048
     Dates: start: 20100620, end: 20110629

REACTIONS (2)
  - ACROCHORDON [None]
  - HYPERAESTHESIA [None]
